FAERS Safety Report 6298704-1 (Version None)
Quarter: 2009Q3

REPORT INFORMATION
  Report Type: 
  Country: None (occurrence: None)
  Receive Date: 20090806
  Receipt Date: 20080319
  Transmission Date: 20100115
  Serious: Yes (Hospitalization, Other)
  Sender: FDA-Public Use
  Company Number: US-ASTRAZENECA-2008UW01204

PATIENT
  Age: 15273 Day
  Sex: Male
  Weight: 118.4 kg

DRUGS (19)
  1. SEROQUEL [Suspect]
     Indication: DEPRESSION
     Dosage: 25-200 MG
     Route: 048
     Dates: start: 20030728
  2. SEROQUEL [Suspect]
     Indication: SCHIZOPHRENIA
     Dosage: 25-200 MG
     Route: 048
     Dates: start: 20030728
  3. SEROQUEL [Suspect]
     Indication: SLEEP DISORDER
     Dosage: 25-200 MG
     Route: 048
     Dates: start: 20030728
  4. SEROQUEL [Suspect]
     Route: 048
     Dates: start: 20040401, end: 20071001
  5. SEROQUEL [Suspect]
     Route: 048
     Dates: start: 20040401, end: 20071001
  6. SEROQUEL [Suspect]
     Route: 048
     Dates: start: 20040401, end: 20071001
  7. GEODON [Concomitant]
     Dates: start: 20050727
  8. HUMULIN 70/30 [Concomitant]
     Dosage: 20-40 UNITS
     Route: 058
     Dates: start: 20050727
  9. ZYPREXA [Concomitant]
     Dosage: 15-30 MG
     Dates: start: 19910101
  10. RISPERDAL [Concomitant]
     Dates: start: 19910101
  11. ASPIRIN [Concomitant]
     Route: 048
     Dates: start: 20060914
  12. GLUCOTROL [Concomitant]
     Indication: DIABETES MELLITUS
     Route: 048
     Dates: start: 20060727
  13. LISINOPRIL [Concomitant]
     Indication: HYPERTENSION
     Dosage: 20-40 MG, DAILY
     Dates: start: 20050727
  14. METFORMIN HCL [Concomitant]
     Indication: DIABETES MELLITUS
     Route: 048
     Dates: start: 20050713
  15. ABILIFY [Concomitant]
     Indication: SCHIZOPHRENIA
     Dosage: 15-20 MG
     Route: 048
     Dates: start: 20060603
  16. MILK OF MAGNESIA TAB [Concomitant]
     Indication: CONSTIPATION
     Route: 048
     Dates: start: 20070414
  17. ATIVAN [Concomitant]
     Indication: ANXIETY
     Route: 048
     Dates: start: 20070410
  18. RESTORIL [Concomitant]
     Indication: SLEEP DISORDER
     Route: 048
     Dates: start: 19910101
  19. HUMULIN R [Concomitant]
     Dosage: 10 UNITS
     Dates: start: 20060727

REACTIONS (5)
  - DIABETES MELLITUS [None]
  - DIABETIC EYE DISEASE [None]
  - DIABETIC KETOACIDOSIS [None]
  - HYPERGLYCAEMIA [None]
  - TYPE 1 DIABETES MELLITUS [None]
